FAERS Safety Report 19237045 (Version 2)
Quarter: 2021Q2

REPORT INFORMATION
  Report Type: Spontaneous
  Country: HR (occurrence: HR)
  Receive Date: 20210510
  Receipt Date: 20210513
  Transmission Date: 20210717
  Serious: Yes (Death, Hospitalization, Other)
  Sender: FDA-Public Use
  Company Number: HR-B.I. PHARMACEUTICALS,INC./RIDGEFIELD-2021-BI-101963

PATIENT
  Age: 91 Year
  Sex: Male

DRUGS (5)
  1. PRADAXA [Suspect]
     Active Substance: DABIGATRAN ETEXILATE MESYLATE
     Indication: ATRIAL FIBRILLATION
     Dosage: 2XDNEVNO
     Route: 048
     Dates: start: 2020, end: 20210320
  2. CONTROLOC [Concomitant]
     Active Substance: PANTOPRAZOLE SODIUM
     Indication: CHRONIC GASTRITIS
     Dosage: ()
     Route: 048
  3. FOLACIN [FOLIC ACID] [Concomitant]
     Active Substance: FOLIC ACID
     Indication: CHRONIC GASTRITIS
     Dosage: ()
     Route: 048
  4. FURSEMID [FUROSEMIDE] [Concomitant]
     Active Substance: FUROSEMIDE
     Indication: PRODUCT USED FOR UNKNOWN INDICATION
     Dosage: ()
     Route: 048
  5. TONOCARDIN [DOXAZOSIN] [Concomitant]
     Indication: HYPERTENSION
     Dosage: ()
     Route: 048

REACTIONS (4)
  - Acute kidney injury [Fatal]
  - Anaemia [Fatal]
  - Hypotension [Fatal]
  - Melaena [Fatal]

NARRATIVE: CASE EVENT DATE: 20210317
